FAERS Safety Report 12204806 (Version 1)
Quarter: 2016Q1

REPORT INFORMATION
  Report Type: Spontaneous
  Country: JP (occurrence: JP)
  Receive Date: 20160323
  Receipt Date: 20160323
  Transmission Date: 20160526
  Serious: Yes (Other)
  Sender: FDA-Public Use
  Company Number: JP-PFIZER INC-2016160337

PATIENT
  Age: 15 Year
  Sex: Female

DRUGS (1)
  1. METHYLPREDNISOLONE. [Suspect]
     Active Substance: METHYLPREDNISOLONE
     Dosage: 1 G FOR 3 DAYS FOR 2 COURSES

REACTIONS (4)
  - Cushingoid [Unknown]
  - Central obesity [Unknown]
  - Drug dependence [Unknown]
  - Blood pressure increased [Unknown]
